FAERS Safety Report 5640384-X (Version None)
Quarter: 2008Q1

REPORT INFORMATION
  Report Type: 
  Country: None (occurrence: None)
  Receive Date: 20080227
  Receipt Date: 20080121
  Transmission Date: 20080703
  Serious: No
  Sender: FDA-Public Use
  Company Number: US-BAXTER-2008BH000319

PATIENT
  Age: 41 Year
  Sex: Male
  Weight: 61 kg

DRUGS (3)
  1. HEPARIN SODIUM [Suspect]
     Indication: PROPHYLAXIS
     Route: 010
     Dates: start: 20080108, end: 20080108
  2. HEPARIN SODIUM [Suspect]
     Route: 010
     Dates: start: 20080108, end: 20080108
  3. HEPARIN SODIUM [Suspect]
     Route: 010
     Dates: start: 20080108, end: 20080108

REACTIONS (7)
  - BLOOD PRESSURE DECREASED [None]
  - DIZZINESS [None]
  - DYSPNOEA [None]
  - HEADACHE [None]
  - LETHARGY [None]
  - MALAISE [None]
  - SKIN DISCOLOURATION [None]
